FAERS Safety Report 15330674 (Version 1)
Quarter: 2018Q3

REPORT INFORMATION
  Report Type: Report from Study
  Country: US (occurrence: US)
  Receive Date: 20180829
  Receipt Date: 20180829
  Transmission Date: 20181010
  Serious: Yes (Hospitalization)
  Sender: FDA-Public Use
  Company Number: US-SAKK-2018SA212662AA

PATIENT
  Age: 67 Year
  Sex: Male
  Weight: 128.1 kg

DRUGS (1)
  1. INSULIN GLARGINE [Suspect]
     Active Substance: INSULIN GLARGINE
     Dosage: 54 U, BID
     Dates: start: 20180717, end: 20180731

REACTIONS (9)
  - Intracranial mass [Not Recovered/Not Resolved]
  - Brain oedema [Not Recovered/Not Resolved]
  - Muscle contractions involuntary [Not Recovered/Not Resolved]
  - Hyperglycaemia [Not Recovered/Not Resolved]
  - Vision blurred [Not Recovered/Not Resolved]
  - Acute kidney injury [Not Recovered/Not Resolved]
  - Sepsis [Not Recovered/Not Resolved]
  - Dysphonia [Not Recovered/Not Resolved]
  - Seizure like phenomena [Not Recovered/Not Resolved]

NARRATIVE: CASE EVENT DATE: 20180731
